FAERS Safety Report 12635176 (Version 1)
Quarter: 2016Q3

REPORT INFORMATION
  Report Type: Spontaneous
  Country: US (occurrence: US)
  Receive Date: 20160808
  Receipt Date: 20160808
  Transmission Date: 20161109
  Serious: No
  Sender: FDA-Public Use
  Company Number: US-009507513-1607USA012878

PATIENT
  Age: 17 Year
  Sex: Female
  Weight: 79.82 kg

DRUGS (2)
  1. NEXPLANON [Suspect]
     Active Substance: ETONOGESTREL
     Dosage: ONE INSERTION
     Route: 059
     Dates: start: 20160727
  2. NEXPLANON [Suspect]
     Active Substance: ETONOGESTREL
     Dosage: ONE INSERTION
     Route: 059
     Dates: start: 20160727, end: 20160727

REACTIONS (3)
  - Complication of device insertion [Recovered/Resolved]
  - No adverse event [Unknown]
  - Product quality issue [Unknown]

NARRATIVE: CASE EVENT DATE: 20160727
